FAERS Safety Report 11530980 (Version 1)
Quarter: 2015Q3

REPORT INFORMATION
  Report Type: Spontaneous
  Country: US (occurrence: US)
  Receive Date: 20150903
  Receipt Date: 20150903
  Transmission Date: 20151125
  Serious: No
  Sender: FDA-Public Use
  Company Number: US-ELI_LILLY_AND_COMPANY-US201307007747

PATIENT
  Sex: Female

DRUGS (1)
  1. CYMBALTA [Suspect]
     Active Substance: DULOXETINE HYDROCHLORIDE
     Dosage: UNK
     Dates: end: 20130712

REACTIONS (6)
  - Crying [Unknown]
  - Hypertension [Unknown]
  - Intentional product misuse [Unknown]
  - Drug withdrawal syndrome [Unknown]
  - Confusional state [Unknown]
  - Insomnia [Unknown]
